FAERS Safety Report 10584868 (Version 2)
Quarter: 2014Q4

REPORT INFORMATION
  Report Type: Spontaneous
  Country: US (occurrence: None)
  Receive Date: 20141113
  Receipt Date: 20141120
  Transmission Date: 20150529
  Serious: Yes (Hospitalization)
  Sender: FDA-Public Use
  Company Number: USW201410-000255

PATIENT
  Age: 83 Year
  Sex: Male
  Weight: 65.31 kg

DRUGS (3)
  1. APOKYN [Suspect]
     Active Substance: APOMORPHINE HYDROCHLORIDE
     Indication: PARKINSON^S DISEASE
     Dates: end: 20141021
  2. LEVODOPA (LEVODOPA) (LEVODOPA) [Concomitant]
  3. CARBIDOPA (CARBIDOPA) (CARBIDOPA) [Concomitant]

REACTIONS (4)
  - Face injury [None]
  - Swelling face [None]
  - Swelling [None]
  - Fall [None]

NARRATIVE: CASE EVENT DATE: 20141023
